FAERS Safety Report 14110630 (Version 1)
Quarter: 2017Q4

REPORT INFORMATION
  Report Type: Spontaneous
  Country: US (occurrence: None)
  Receive Date: 20171019
  Receipt Date: 20171019
  Transmission Date: 20180321
  Serious: Yes (Other)
  Sender: FDA-Public Use
  Company Number: None

PATIENT
  Age: 59 Year
  Sex: Female

DRUGS (1)
  1. AMPYRA [Suspect]
     Active Substance: DALFAMPRIDINE
     Indication: MULTIPLE SCLEROSIS
     Route: 048
     Dates: start: 201202

REACTIONS (6)
  - Cough [None]
  - Pyrexia [None]
  - Oropharyngeal pain [None]
  - Upper respiratory tract infection [None]
  - Nasal congestion [None]
  - Pain [None]

NARRATIVE: CASE EVENT DATE: 20171009
